FAERS Safety Report 6820432-1 (Version None)
Quarter: 2010Q3

REPORT INFORMATION
  Report Type: 
  Country: None (occurrence: None)
  Receive Date: 20100707
  Receipt Date: 20100629
  Transmission Date: 20110219
  Serious: Yes (Hospitalization, Other)
  Sender: FDA-Public Use
  Company Number: US-PFIZER INC-2010081698

PATIENT
  Sex: Female
  Weight: 61.234 kg

DRUGS (13)
  1. CELEBREX [Suspect]
     Dates: start: 20100101
  2. TRICOR [Suspect]
     Dates: end: 20100101
  3. LOVASTATIN [Suspect]
     Dates: end: 20100101
  4. CLIMARA [Suspect]
     Indication: HOT FLUSH
     Dates: start: 20090101
  5. NAPROXEN [Suspect]
     Indication: ARTHRITIS
     Dosage: FREQUENCY: 2X/DAY,
     Dates: end: 20100101
  6. PREMPRO [Concomitant]
     Indication: HOT FLUSH
     Dates: end: 20090101
  7. ACETYLSALICYLIC ACID [Concomitant]
  8. HYZAAR [Concomitant]
     Indication: BLOOD PRESSURE
  9. FENTANYL [Concomitant]
     Dosage: FREQUENCY: EVERY 72 HOURS,
  10. ACIPHEX [Concomitant]
  11. WELLBUTRIN XL [Concomitant]
     Dosage: FREQUENCY: 2X/DAILY,
  12. MULTI-VITAMINS [Concomitant]
  13. RESTORIL [Concomitant]
     Indication: SLEEP DISORDER

REACTIONS (5)
  - ALOPECIA [None]
  - BACK DISORDER [None]
  - HAEMATOCHEZIA [None]
  - MUSCULOSKELETAL DISCOMFORT [None]
  - TYPE 2 DIABETES MELLITUS [None]
